FAERS Safety Report 8440531 (Version 2)
Quarter: 2013Q2

REPORT INFORMATION
  Report Type: Spontaneous
  Country: US (occurrence: US)
  Receive Date: 20120305
  Receipt Date: 20130415
  Transmission Date: 20140414
  Serious: Yes (Other)
  Sender: FDA-Public Use
  Company Number: PHEH2012US004923

PATIENT
  Sex: Female

DRUGS (4)
  1. DIOVAN [Suspect]
     Dosage: 160 MG, QD
     Route: 048
     Dates: start: 2005
  2. LETROZOLE [Concomitant]
  3. WARFARIN [Concomitant]
  4. BABY ASPIRIN [Concomitant]

REACTIONS (1)
  - Breast cancer [Unknown]
